FAERS Safety Report 25051715 (Version 1)
Quarter: 2025Q1

REPORT INFORMATION
  Report Type: Spontaneous
  Country: US (occurrence: None)
  Receive Date: 20250307
  Receipt Date: 20250307
  Transmission Date: 20250408
  Serious: No
  Sender: FDA-CTU
  Company Number: None

PATIENT
  Age: 36 Year
  Sex: Male
  Weight: 97.52 kg

DRUGS (1)
  1. ADBRY [Suspect]
     Active Substance: TRALOKINUMAB-LDRM
     Indication: Dermatitis atopic
     Dosage: INJECT 300MG (1 PEN) SUBCUTANEOUSLY EVERY  OTHER WEEK AS DIRECTED.
     Route: 058
     Dates: start: 202412

REACTIONS (2)
  - Tooth infection [None]
  - Injection site reaction [None]
